FAERS Safety Report 4746655-3 (Version None)
Quarter: 2005Q3

REPORT INFORMATION
  Report Type: 
  Country: None (occurrence: None)
  Receive Date: 20050816
  Receipt Date: 20050816
  Transmission Date: 20060218
  Serious: No
  Sender: FDA-Public Use
  Company Number: None

PATIENT
  Age: 66 Year
  Sex: Female
  Weight: 80.7403 kg

DRUGS (3)
  1. IBUPROFEN [Suspect]
     Indication: OSTEOARTHRITIS
     Dosage: 800 MG TO 2400 MG
  2. HYDROCODEINE (1 PRESIYR) [Suspect]
     Indication: PAIN
     Dosage: ONLY AS NEEDED FOR PAIN
  3. HYDROCODEINE (1 PRESIYR) [Suspect]
     Indication: SCOLIOSIS
     Dosage: ONLY AS NEEDED FOR PAIN

REACTIONS (1)
  - HEPATIC STEATOSIS [None]
